FAERS Safety Report 12810437 (Version 15)
Quarter: 2017Q4

REPORT INFORMATION
  Report Type: Report from Study
  Country: FR (occurrence: FR)
  Receive Date: 20161005
  Receipt Date: 20171127
  Transmission Date: 20180320
  Serious: Yes (Hospitalization, Other)
  Sender: FDA-Public Use
  Company Number: PHHY2016FR085943

PATIENT
  Age: 51 Year
  Sex: Female
  Weight: 88.3 kg

DRUGS (6)
  1. STRESAM [Concomitant]
     Active Substance: ETIFOXINE
     Indication: PRODUCT USED FOR UNKNOWN INDICATION
     Dosage: UNK UNK, QD
     Route: 065
  2. JANUVIA [Concomitant]
     Active Substance: SITAGLIPTIN PHOSPHATE
     Indication: PRODUCT USED FOR UNKNOWN INDICATION
     Dosage: UNK UNK, TID
     Route: 065
  3. SIGNIFOR [Suspect]
     Active Substance: PASIREOTIDE
     Dosage: UNK
     Route: 058
     Dates: start: 20150622, end: 20160615
  4. STAGID [Concomitant]
     Active Substance: METFORMIN PAMOATE
     Indication: PRODUCT USED FOR UNKNOWN INDICATION
     Dosage: 700 MG, UNK
     Route: 065
  5. SIGNIFOR [Suspect]
     Active Substance: PASIREOTIDE
     Indication: PITUITARY-DEPENDENT CUSHING^S SYNDROME
     Dosage: UNK UNK, BID
     Route: 058
     Dates: start: 20130826, end: 20150621
  6. PROZAC [Concomitant]
     Active Substance: FLUOXETINE HYDROCHLORIDE
     Indication: PRODUCT USED FOR UNKNOWN INDICATION
     Dosage: 20 MG, QD (EVENING)
     Route: 065

REACTIONS (17)
  - Pneumocephalus [Recovered/Resolved]
  - Hyperglycaemia [Recovered/Resolved]
  - Rhinorrhoea [Unknown]
  - Hypokalaemia [Recovered/Resolved]
  - Metabolic disorder [Recovered/Resolved]
  - Pituitary-dependent Cushing^s syndrome [Unknown]
  - Hypokalaemia [Unknown]
  - Hypertension [Recovered/Resolved]
  - Meningitis [Recovered/Resolved]
  - Hypertension [Unknown]
  - Hyperglycaemia [Recovered/Resolved]
  - Condition aggravated [Unknown]
  - Cerebrospinal fluid leakage [Recovering/Resolving]
  - Enterobacter infection [Unknown]
  - Thyroid disorder [Unknown]
  - Headache [Unknown]
  - Diabetes mellitus inadequate control [Recovered/Resolved]

NARRATIVE: CASE EVENT DATE: 20160118
